FAERS Safety Report 14045121 (Version 1)
Quarter: 2017Q4

REPORT INFORMATION
  Report Type: Spontaneous
  Country: RU (occurrence: RU)
  Receive Date: 20171005
  Receipt Date: 20171005
  Transmission Date: 20180321
  Serious: Yes (Other)
  Sender: FDA-Public Use
  Company Number: RU-BAYER-2017-187929

PATIENT
  Age: 43 Year
  Sex: Female

DRUGS (1)
  1. ETHINYLESTRADIOL + LEVONORGESTREL [Suspect]
     Active Substance: ETHINYL ESTRADIOL\LEVONORGESTREL
     Indication: UTERINE ENLARGEMENT
     Dosage: UNK
     Dates: start: 2014

REACTIONS (3)
  - Off label use [None]
  - Product use in unapproved indication [None]
  - Breast cancer [None]

NARRATIVE: CASE EVENT DATE: 2014
